FAERS Safety Report 5036708-7 (Version None)
Quarter: 2006Q2

REPORT INFORMATION
  Report Type: 
  Country: None (occurrence: None)
  Receive Date: 20060616
  Receipt Date: 20060327
  Transmission Date: 20061013
  Serious: No
  Sender: FDA-Public Use
  Company Number: 2006RL000106

PATIENT
  Age: 54 Year
  Sex: Male
  Weight: 86.1834 kg

DRUGS (6)
  1. OMACOR [Suspect]
     Indication: BLOOD TRIGLYCERIDES INCREASED
     Dosage: 2 GM;BID;PO
     Route: 048
     Dates: start: 20060101, end: 20060101
  2. LIPITOR [Concomitant]
  3. ASPIRIN [Concomitant]
  4. METFORMIN [Concomitant]
  5. ATENOLOL [Concomitant]
  6. HYZAAR [Concomitant]

REACTIONS (2)
  - DRY SKIN [None]
  - RASH [None]
